FAERS Safety Report 6761341-6 (Version None)
Quarter: 2010Q2

REPORT INFORMATION
  Report Type: 
  Country: None (occurrence: None)
  Receive Date: 20100608
  Receipt Date: 20100601
  Transmission Date: 20101027
  Serious: Yes (Disabling, Other)
  Sender: FDA-Public Use
  Company Number: US-MERCK-1003USA03105

PATIENT
  Age: 78 Year
  Sex: Female
  Weight: 47 kg

DRUGS (3)
  1. FOSAMAX [Suspect]
     Route: 048
     Dates: start: 19991105, end: 20001201
  2. FOSAMAX [Suspect]
     Route: 048
     Dates: start: 20010501, end: 20020101
  3. FOSAMAX [Suspect]
     Route: 048
     Dates: start: 20060301, end: 20080401

REACTIONS (17)
  - ABSCESS [None]
  - ADVERSE DRUG REACTION [None]
  - ANXIETY [None]
  - ATRIAL SEPTAL DEFECT [None]
  - BONE DISORDER [None]
  - CEREBRAL ARTERIOSCLEROSIS [None]
  - CYST [None]
  - DENTAL NECROSIS [None]
  - EPILEPSY [None]
  - GINGIVITIS [None]
  - OSTEONECROSIS OF JAW [None]
  - PERIODONTITIS [None]
  - PERNICIOUS ANAEMIA [None]
  - TOOTH ABSCESS [None]
  - TOOTH DISORDER [None]
  - TOOTH INFECTION [None]
  - VITAMIN B12 DEFICIENCY [None]
